FAERS Safety Report 7973200-1 (Version None)
Quarter: 2011Q4

REPORT INFORMATION
  Report Type: 
  Country: None (occurrence: None)
  Receive Date: 20111213
  Receipt Date: 20111128
  Transmission Date: 20120403
  Serious: Yes (Other)
  Sender: FDA-Public Use
  Company Number: PHEH2011US04420

PATIENT
  Sex: Female
  Weight: 108.84 kg

DRUGS (10)
  1. GLEEVEC [Suspect]
     Indication: CHRONIC MYELOID LEUKAEMIA (IN REMISSION)
     Dosage: 400 MG, DAILY
     Route: 048
     Dates: start: 20050101
  2. GLEEVEC [Suspect]
     Dosage: 400 MG, DAILY
     Route: 048
     Dates: start: 20080814
  3. ESOMEPRAZOLE SODIUM [Concomitant]
     Dosage: 40 MG, DAILY
  4. ONDASETRON [Concomitant]
     Indication: NAUSEA
     Dosage: 8 MG, PRN
  5. BISOPROLOL FUMARATE [Concomitant]
     Dosage: 5 MG, BID
  6. ZOLPIDEM [Concomitant]
     Dosage: 5 MG, AT BEDTIME
  7. FOLIC ACID [Concomitant]
     Dosage: 1 MG, DAILY
  8. VITAMIN D [Concomitant]
     Dosage: 1000 U, DAILY
  9. LANSOPRAZOLE [Concomitant]
     Dosage: 30 MG, DAILY
  10. ATENOLOL [Concomitant]
     Dosage: 25 MG, DAILY

REACTIONS (6)
  - NAUSEA [None]
  - CONJUNCTIVAL HAEMORRHAGE [None]
  - MACULAR HOLE [None]
  - BLOOD PRESSURE SYSTOLIC INCREASED [None]
  - DRY EYE [None]
  - BACK PAIN [None]
